FAERS Safety Report 16001994 (Version 2)
Quarter: 2021Q4

REPORT INFORMATION
  Report Type: Spontaneous
  Country: CA (occurrence: CA)
  Receive Date: 20190225
  Receipt Date: 20211013
  Transmission Date: 20220303
  Serious: Yes (Other)
  Sender: FDA-Public Use
  Company Number: CA-PFIZER INC-2019075400

PATIENT
  Sex: Female

DRUGS (16)
  1. METHOTREXATE SODIUM [Suspect]
     Active Substance: METHOTREXATE SODIUM
     Dosage: UNK
     Route: 042
  2. VERAPAMIL HCL [Suspect]
     Active Substance: VERAPAMIL HYDROCHLORIDE
     Dosage: 120 MG, ONCE PER DAY
  3. METHOTREXATE SODIUM [Suspect]
     Active Substance: METHOTREXATE SODIUM
     Route: 042
  4. ASPIRIN [Suspect]
     Active Substance: ASPIRIN
     Dosage: 81 MG, ONCE PER DAY
  5. BREO ELLIPTA [Suspect]
     Active Substance: FLUTICASONE FUROATE\VILANTEROL TRIFENATATE
     Dosage: UNKNOWN DOSE, ONCE PER DAY
  6. BREO ELLIPTA [Suspect]
     Active Substance: FLUTICASONE FUROATE\VILANTEROL TRIFENATATE
     Dosage: 20 MG, 1 EVERY 1 DAYS
     Route: 065
  7. LOSEC [Suspect]
     Active Substance: OMEPRAZOLE
     Dosage: 20 MG, ONCE PER DAY
  8. OXYCODONE [Suspect]
     Active Substance: OXYCODONE
     Dosage: 35 MG, THREE TIMES PER DAY
  9. REMICADE [Suspect]
     Active Substance: INFLIXIMAB
     Dosage: UNK
  10. UMECLIDINIUM BROMIDE [Suspect]
     Active Substance: UMECLIDINIUM BROMIDE
     Dosage: UNK
  11. UMECLIDINIUM BROMIDE [Suspect]
     Active Substance: UMECLIDINIUM BROMIDE
     Dosage: UNK
  12. ASPIRIN [Suspect]
     Active Substance: ASPIRIN
     Dosage: 1 DF, 1 EVERY 1 DAYS
     Route: 065
  13. OMEPRAZOLE MAGNESIUM [Suspect]
     Active Substance: OMEPRAZOLE MAGNESIUM
     Dosage: 20 MG, 1 EVERY 1 DAYS
     Route: 048
  14. OXYCODONE [Suspect]
     Active Substance: OXYCODONE
     Dosage: 3 DF, 1 EVERY 1 DAYS
     Route: 065
  15. REMICADE [Suspect]
     Active Substance: INFLIXIMAB
     Route: 065
  16. ASPIRIN [Concomitant]
     Active Substance: ASPIRIN
     Dosage: 81 MG, 1 EVERY 1 DAYS
     Route: 065

REACTIONS (8)
  - Cardiac disorder [Unknown]
  - Cerebrovascular accident [Unknown]
  - Malaise [Unknown]
  - Pain [Unknown]
  - Pain in extremity [Unknown]
  - Peripheral swelling [Unknown]
  - Renal failure [Unknown]
  - Rheumatoid arthritis [Unknown]
